FAERS Safety Report 4465528-7 (Version None)
Quarter: 2004Q4

REPORT INFORMATION
  Report Type: 
  Country: None (occurrence: None)
  Receive Date: 20041004
  Receipt Date: 20040219
  Transmission Date: 20050328
  Serious: No
  Sender: FDA-Public Use
  Company Number: US-GLAXOSMITHKLINE-A0499049A

PATIENT
  Age: 37 Year
  Sex: Female

DRUGS (3)
  1. IMITREX [Suspect]
     Indication: MIGRAINE
     Route: 045
  2. DEPAKOTE [Concomitant]
     Indication: MIGRAINE PROPHYLAXIS
  3. IMITREX [Concomitant]
     Dosage: 100MG AS REQUIRED
     Route: 048

REACTIONS (3)
  - MALAISE [None]
  - PHARMACEUTICAL PRODUCT COMPLAINT [None]
  - VOMITING [None]
